FAERS Safety Report 7990528-X (Version None)
Quarter: 2011Q4

REPORT INFORMATION
  Report Type: 
  Country: None (occurrence: None)
  Receive Date: 20111219
  Receipt Date: 20110601
  Transmission Date: 20120403
  Serious: No
  Sender: FDA-Public Use
  Company Number: US-ASTRAZENECA-2010SE05336

PATIENT
  Age: 84 Year
  Sex: Female
  Weight: 61.2 kg

DRUGS (9)
  1. BIOTINE [Concomitant]
  2. CRESTOR [Suspect]
     Route: 048
     Dates: start: 20110201
  3. TOPROL-XL [Suspect]
     Route: 048
  4. BLOOD PRESSURE MEDICATION [Concomitant]
  5. AMLODIPINE [Concomitant]
  6. CRESTOR [Suspect]
     Indication: BLOOD CHOLESTEROL
     Route: 048
     Dates: start: 20090101
  7. METOPROLOL TARTRATE [Suspect]
  8. FUROSEMIDE [Concomitant]
  9. ACETAMINOPHEN [Concomitant]
     Indication: PAIN

REACTIONS (2)
  - COUGH [None]
  - ALOPECIA [None]
